FAERS Safety Report 6331687-4 (Version None)
Quarter: 2009Q3

REPORT INFORMATION
  Report Type: 
  Country: None (occurrence: None)
  Receive Date: 20090827
  Receipt Date: 20090818
  Transmission Date: 20100115
  Serious: Yes (Hospitalization)
  Sender: FDA-Public Use
  Company Number: US-ABBOTT-09P-163-0592183-00

PATIENT
  Sex: Male
  Weight: 77.634 kg

DRUGS (1)
  1. HUMIRA [Suspect]
     Indication: CROHN'S DISEASE
     Route: 058
     Dates: start: 20090610, end: 20090801

REACTIONS (5)
  - ASTHENIA [None]
  - FURUNCLE [None]
  - HYPOPHAGIA [None]
  - MOBILITY DECREASED [None]
  - WEIGHT DECREASED [None]
